FAERS Safety Report 18546700 (Version 1)
Quarter: 2020Q4

REPORT INFORMATION
  Report Type: Report from Study
  Country: US (occurrence: US)
  Receive Date: 20201125
  Receipt Date: 20201125
  Transmission Date: 20210114
  Serious: Yes (Other)
  Sender: FDA-Public Use
  Company Number: US-MYLANLABS-2020M1097380

PATIENT
  Age: 72 Year
  Sex: Female

DRUGS (1)
  1. DOXORUBICIN [Suspect]
     Active Substance: DOXORUBICIN
     Indication: PERITONEAL CANCER INDEX
     Dosage: UNK UNK, CYCLE THE WOMAN RECEIVED 55CYCLES
     Route: 065

REACTIONS (1)
  - Squamous cell carcinoma of head and neck [Recovered/Resolved]
